FAERS Safety Report 6460448-0 (Version None)
Quarter: 2009Q4

REPORT INFORMATION
  Report Type: 
  Country: None (occurrence: None)
  Receive Date: 20091130
  Receipt Date: 20091116
  Transmission Date: 20100525
  Serious: Yes (Other)
  Sender: FDA-Public Use
  Company Number: GB-CELGENEUS-167-20484-09111576

PATIENT
  Sex: Female
  Weight: 1.69 kg

DRUGS (10)
  1. INNOHEP [Suspect]
     Route: 064
     Dates: start: 20071127, end: 20080506
  2. BETAMETHASONE [Concomitant]
     Route: 064
     Dates: start: 20080412, end: 20080430
  3. DIAMORPHINE [Concomitant]
     Route: 064
     Dates: start: 20080506, end: 20080506
  4. MARCAINE [Concomitant]
     Route: 064
     Dates: start: 20080506, end: 20080506
  5. SYNTOCINON [Concomitant]
     Route: 064
     Dates: start: 20080506, end: 20080506
  6. CEFUROXIME [Concomitant]
     Route: 064
     Dates: start: 20080506, end: 20080506
  7. DICLOFENAC [Concomitant]
     Route: 064
     Dates: start: 20080506, end: 20080506
  8. METRONIDAZOLE [Concomitant]
     Route: 064
     Dates: start: 20080506, end: 20080506
  9. PARACETAMOL [Concomitant]
     Route: 064
     Dates: start: 20080506, end: 20080506
  10. CODEINE [Concomitant]
     Route: 064
     Dates: start: 20080506, end: 20080506

REACTIONS (2)
  - DRUG EXPOSURE DURING PREGNANCY [None]
  - PREMATURE BABY [None]
